FAERS Safety Report 7415274-2 (Version None)
Quarter: 2011Q2

REPORT INFORMATION
  Report Type: 
  Country: None (occurrence: None)
  Receive Date: 20110414
  Receipt Date: 20110331
  Transmission Date: 20111010
  Serious: Yes (Hospitalization)
  Sender: FDA-Public Use
  Company Number: US-JNJFOC-20110401327

PATIENT
  Sex: Female
  Weight: 54.6 kg

DRUGS (12)
  1. REMICADE [Suspect]
     Indication: INFLAMMATORY BOWEL DISEASE
     Route: 042
  2. XOPENEX [Concomitant]
     Route: 065
  3. BECLOMETHASONE DIPROPIONATE [Concomitant]
     Route: 065
  4. IRON [Concomitant]
     Route: 065
  5. MULTI-VITAMINS [Concomitant]
     Route: 065
  6. URSODIOL [Concomitant]
     Route: 065
  7. REMICADE [Suspect]
     Route: 042
  8. MESALAMINE [Concomitant]
     Route: 048
  9. MERCAPTOPURINE [Concomitant]
     Route: 065
  10. ALBUTEROL [Concomitant]
     Route: 065
  11. PREVACID [Concomitant]
     Route: 065
  12. LEVAQUIN [Concomitant]
     Route: 065

REACTIONS (1)
  - ASTHMA [None]
